FAERS Safety Report 14919068 (Version 2)
Quarter: 2018Q2

REPORT INFORMATION
  Report Type: Spontaneous
  Country: JP (occurrence: JP)
  Receive Date: 20180521
  Receipt Date: 20180526
  Transmission Date: 20180711
  Serious: Yes (Death)
  Sender: FDA-Public Use
  Company Number: JP-NOVOPROD-599651

PATIENT
  Age: 84 Year
  Sex: Female
  Weight: 48 kg

DRUGS (19)
  1. SOLDEM 3A [Concomitant]
     Active Substance: CARBOHYDRATES\POTASSIUM CHLORIDE\SODIUM CHLORIDE\SODIUM LACTATE
     Indication: PROPHYLAXIS
     Dosage: 500 MG, BID
     Route: 042
     Dates: start: 20180423, end: 20180501
  2. ZOSYN [Concomitant]
     Active Substance: PIPERACILLIN SODIUM\TAZOBACTAM SODIUM
     Indication: INFECTION
     Dosage: 4.5 G, TID
     Route: 042
     Dates: start: 20180423
  3. ZOSYN [Concomitant]
     Active Substance: PIPERACILLIN SODIUM\TAZOBACTAM SODIUM
     Dosage: 4.5 UNK, UNK
     Route: 042
     Dates: start: 20180502, end: 20180506
  4. ALBUMIN [Concomitant]
     Active Substance: ALBUMIN HUMAN
     Indication: HAEMORRHAGE
     Dosage: 10 G, BID
     Route: 042
     Dates: start: 20180505, end: 20180506
  5. NOVOSEVEN [Suspect]
     Active Substance: COAGULATION FACTOR VIIA RECOMBINANT HUMAN
     Dosage: 3 HOUR INTERVAL
     Route: 042
     Dates: start: 20180502, end: 20180506
  6. TRANSAMIN [Concomitant]
     Active Substance: TRANEXAMIC ACID
     Indication: IMMUNE TOLERANCE INDUCTION
     Dosage: 500 MG, TID
     Route: 042
     Dates: start: 20180423, end: 20180427
  7. VENILON [Concomitant]
     Active Substance: HUMAN IMMUNOGLOBULIN G
     Indication: INFECTION
     Dosage: 5 G, QD
     Route: 042
     Dates: start: 20180505, end: 20180506
  8. PRODIF [Concomitant]
     Active Substance: FOSFLUCONAZOLE
     Indication: PROPHYLAXIS
     Dosage: 200 MG, QD
     Route: 042
     Dates: start: 20180423, end: 20180427
  9. NOVOSEVEN [Suspect]
     Active Substance: COAGULATION FACTOR VIIA RECOMBINANT HUMAN
     Indication: MUSCLE HAEMORRHAGE
     Dosage: 3-HOUR INTERVALS
     Route: 042
     Dates: start: 20180424
  10. TAKEPRON [Concomitant]
     Active Substance: LANSOPRAZOLE
     Indication: PROPHYLAXIS
     Dosage: 30 MG, QD
     Route: 042
     Dates: start: 20180423, end: 20180427
  11. KAKODIN D [Concomitant]
     Indication: HYPERTENSION
     Dosage: 600 MG, QD
     Route: 042
     Dates: start: 20180506, end: 20180506
  12. NOVOSEVEN [Suspect]
     Active Substance: COAGULATION FACTOR VIIA RECOMBINANT HUMAN
     Indication: RECTAL HAEMORRHAGE
     Dosage: 4-HOUR INTERVALS
     Route: 042
     Dates: start: 20180425
  13. NOVOSEVEN [Suspect]
     Active Substance: COAGULATION FACTOR VIIA RECOMBINANT HUMAN
     Indication: GASTROINTESTINAL HAEMORRHAGE
     Dosage: 5MG X 4(6-HOUR INTERVALS)
     Route: 042
     Dates: start: 20180426
  14. NOVOSEVEN [Suspect]
     Active Substance: COAGULATION FACTOR VIIA RECOMBINANT HUMAN
     Dosage: 5MG X 2(12-HOUR INTERVALS)
     Route: 042
     Dates: start: 20180428
  15. VEEN D [Concomitant]
     Active Substance: CALCIUM CHLORIDE\DEXTROSE\POTASSIUM CHLORIDE\SODIUM ACETATE\SODIUM CHLORIDE
     Indication: DEHYDRATION
     Dosage: 500 ML, QD
     Route: 042
     Dates: start: 20180505, end: 20180506
  16. PREDONINE [Concomitant]
     Active Substance: PREDNISOLONE
     Indication: IMMUNE TOLERANCE INDUCTION
     Dosage: 50 MG, QD
     Route: 042
     Dates: start: 20180423, end: 20180501
  17. NOVOSEVEN [Suspect]
     Active Substance: COAGULATION FACTOR VIIA RECOMBINANT HUMAN
     Indication: ACQUIRED HAEMOPHILIA
     Dosage: 5 MG AT 2 HOUR INTERVALS
     Route: 042
     Dates: start: 20180423
  18. FESIN                              /00023550/ [Concomitant]
     Active Substance: IRON SUCROSE
     Indication: HAEMORRHAGE
     Dosage: 3 AMPLE /DAY
     Route: 042
     Dates: start: 20180502, end: 20180506
  19. GLOBULIN (IMMUNOGLOBULIN HUMAN NORMAL) [Concomitant]
     Active Substance: HUMAN IMMUNOGLOBULIN G

REACTIONS (3)
  - Septic shock [Fatal]
  - Cardiac failure [Fatal]
  - Shock haemorrhagic [Fatal]

NARRATIVE: CASE EVENT DATE: 20180506
